FAERS Safety Report 24669335 (Version 1)
Quarter: 2024Q4

REPORT INFORMATION
  Report Type: Spontaneous
  Country: GB (occurrence: GB)
  Receive Date: 20241127
  Receipt Date: 20241127
  Transmission Date: 20250115
  Serious: Yes (Hospitalization, Other)
  Sender: CHEPLAPHARM
  Company Number: None

PATIENT
  Age: 38 Year
  Sex: Male

DRUGS (4)
  1. OLANZAPINE [Suspect]
     Active Substance: OLANZAPINE
     Indication: Acute psychosis
     Dosage: 17.5 MG ONCE A DAY AT NIGHT?DAILY DOSE: 17.5 MILLIGRAM
     Dates: end: 20241118
  2. DIAZEPAM [Concomitant]
     Active Substance: DIAZEPAM
     Indication: Anxiety
  3. MIRTAZAPINE [Concomitant]
     Active Substance: MIRTAZAPINE
     Indication: Insomnia
  4. LACOSAMIDE [Concomitant]
     Active Substance: LACOSAMIDE
     Indication: Adverse drug reaction

REACTIONS (1)
  - Dystonia [Recovered/Resolved]
